FAERS Safety Report 8218172-X (Version None)
Quarter: 2012Q1

REPORT INFORMATION
  Report Type: 
  Country: None (occurrence: None)
  Receive Date: 20120316
  Receipt Date: 20120316
  Transmission Date: 20120608
  Serious: Yes (Life-Threatening)
  Sender: FDA-Public Use
  Company Number: None

PATIENT
  Sex: Male
  Weight: 85.8 kg

DRUGS (5)
  1. ACETAMINOPHEN [Concomitant]
  2. VEMURAFENIB (ZELBORAF) 240MG ROCHE [Suspect]
     Indication: MALIGNANT MELANOMA
     Dosage: 960MG DAILY ORAL
     Route: 048
     Dates: start: 20120130, end: 20120302
  3. PAROXETINE HCL [Concomitant]
  4. DIAZEPAM [Concomitant]
  5. FAMOTIDINE [Concomitant]

REACTIONS (2)
  - TACHYCARDIA [None]
  - DYSPNOEA [None]
